FAERS Safety Report 5397596-2 (Version None)
Quarter: 2007Q3

REPORT INFORMATION
  Report Type: 
  Country: None (occurrence: None)
  Receive Date: 20070726
  Receipt Date: 20070717
  Transmission Date: 20080115
  Serious: Yes (Death, Life-Threatening, Hospitalization, Disabling, Other)
  Sender: FDA-Public Use
  Company Number: JP-JNJFOC-20070605946

PATIENT
  Sex: Male
  Weight: 64 kg

DRUGS (7)
  1. RISPERDAL [Suspect]
     Indication: INSOMNIA
     Route: 048
  2. RISPERDAL [Suspect]
     Indication: DELIRIUM
     Route: 048
  3. HALDOL [Suspect]
     Indication: INSOMNIA
     Route: 042
  4. HALDOL [Suspect]
     Indication: DELIRIUM
     Route: 042
  5. NITRAZEPAM [Concomitant]
     Route: 048
  6. ARTIST [Concomitant]
     Route: 048
  7. WARFARIN SODIUM [Concomitant]
     Route: 048

REACTIONS (6)
  - DRUG WITHDRAWAL SYNDROME [None]
  - PARKINSONISM [None]
  - PNEUMONIA STAPHYLOCOCCAL [None]
  - RESPIRATORY ALKALOSIS [None]
  - RESPIRATORY DYSKINESIA [None]
  - TARDIVE DYSKINESIA [None]
